FAERS Safety Report 12364265 (Version 1)
Quarter: 2016Q2

REPORT INFORMATION
  Report Type: Spontaneous
  Country: BE (occurrence: BE)
  Receive Date: 20160513
  Receipt Date: 20160513
  Transmission Date: 20160815
  Serious: Yes (Other)
  Sender: FDA-Public Use
  Company Number: BE-AMGEN-BELSP2016034257

PATIENT
  Age: 37 Year
  Sex: Female
  Weight: 71 kg

DRUGS (1)
  1. ENBREL [Suspect]
     Active Substance: ETANERCEPT
     Indication: PSORIASIS
     Dosage: 50 MG, WEEKLY
     Route: 058
     Dates: start: 20150206

REACTIONS (5)
  - Condition aggravated [Unknown]
  - Psoriasis [Unknown]
  - Autoimmune thyroiditis [Unknown]
  - Inflammation [Unknown]
  - Stress [Unknown]

NARRATIVE: CASE EVENT DATE: 20160115
